FAERS Safety Report 15110451 (Version 3)
Quarter: 2019Q3

REPORT INFORMATION
  Report Type: Report from Study
  Country: US (occurrence: US)
  Receive Date: 20180705
  Receipt Date: 20190828
  Transmission Date: 20191004
  Serious: Yes (Hospitalization, Other)
  Sender: FDA-Public Use
  Company Number: PHEH2018US026269

PATIENT
  Sex: Female

DRUGS (1)
  1. TASIGNA [Suspect]
     Active Substance: NILOTINIB
     Indication: PRODUCT USED FOR UNKNOWN INDICATION
     Route: 065

REACTIONS (6)
  - Blood count abnormal [Unknown]
  - Gastrointestinal haemorrhage [Unknown]
  - Recurrent cancer [Unknown]
  - Malaise [Unknown]
  - Bronchitis [Unknown]
  - Leukaemia [Unknown]
